FAERS Safety Report 13687389 (Version 1)
Quarter: 2017Q2

REPORT INFORMATION
  Report Type: Spontaneous
  Country: US (occurrence: US)
  Receive Date: 20170624
  Receipt Date: 20170624
  Transmission Date: 20170830
  Serious: Yes (Hospitalization)
  Sender: FDA-Public Use
  Company Number: US-GLENMARK PHARMACEUTICALS-2017GMK027944

PATIENT

DRUGS (5)
  1. GABAPENTIN TABLETS [Suspect]
     Active Substance: GABAPENTIN
     Indication: NEURALGIA
     Dosage: 600 MG (2 TABLETS IN MORNING AND 1 IN AFTERNOON)
     Route: 065
     Dates: end: 2017
  2. MORPHINE [Concomitant]
     Active Substance: MORPHINE
     Indication: PAIN
     Dosage: UNK
     Route: 048
  3. METHOTREXATE. [Concomitant]
     Active Substance: METHOTREXATE
     Indication: RHEUMATOID ARTHRITIS
     Dosage: 1 DF, QW
     Route: 048
  4. TIZANIDINE. [Concomitant]
     Active Substance: TIZANIDINE
     Indication: PRODUCT USED FOR UNKNOWN INDICATION
     Dosage: 4 MG, QW
     Route: 048
  5. GABAPENTIN TABLETS [Suspect]
     Active Substance: GABAPENTIN
     Indication: FACIAL PAIN

REACTIONS (6)
  - Scoliosis [Unknown]
  - Dysgraphia [Recovered/Resolved]
  - Therapeutic response unexpected [Unknown]
  - Facial spasm [Recovered/Resolved]
  - Off label use [Unknown]
  - Dysarthria [Recovered/Resolved]
